FAERS Safety Report 9307635 (Version 1)
Quarter: 2013Q2

REPORT INFORMATION
  Report Type: Spontaneous
  Country: US (occurrence: US)
  Receive Date: 20130524
  Receipt Date: 20130524
  Transmission Date: 20140414
  Serious: No
  Sender: FDA-Public Use
  Company Number: US-PFIZER INC-2013154504

PATIENT
  Age: 39 Year
  Sex: Male
  Weight: 101 kg

DRUGS (3)
  1. RAPAMUNE [Suspect]
     Indication: IMMUNOSUPPRESSION
     Dosage: 2 MG, DAILY
  2. PREDNISONE [Concomitant]
     Dosage: 5 MG, DAILY
  3. MYFORTIC [Concomitant]
     Dosage: 720 MG, DAILY

REACTIONS (1)
  - Blood triglycerides increased [Not Recovered/Not Resolved]
